FAERS Safety Report 24425637 (Version 1)
Quarter: 2024Q4

REPORT INFORMATION
  Report Type: Spontaneous
  Country: CN (occurrence: CN)
  Receive Date: 20241011
  Receipt Date: 20241011
  Transmission Date: 20250114
  Serious: Yes (Disabling)
  Sender: CHEPLAPHARM
  Company Number: CN-CHEPLA-2024012722

PATIENT
  Age: 48 Year
  Sex: Female
  Weight: 46 kg

DRUGS (8)
  1. OLANZAPINE [Suspect]
     Active Substance: OLANZAPINE
     Indication: Psychotic disorder
     Dosage: APPROVAL NUMBER: H20160497??DAILY DOSE: 5 MILLIGRAM
     Route: 048
     Dates: start: 20240904, end: 20240907
  2. OLANZAPINE [Suspect]
     Active Substance: OLANZAPINE
     Indication: Schizophrenia
     Dosage: APPROVAL NUMBER: H20160497??DAILY DOSE: 5 MILLIGRAM
     Route: 048
     Dates: start: 20240904, end: 20240907
  3. OLANZAPINE [Suspect]
     Active Substance: OLANZAPINE
     Indication: Psychotic disorder
     Dosage: APPROVAL NUMBER: H20160497??DAILY DOSE: 7.5 MILLIGRAM
     Route: 048
     Dates: start: 20240908, end: 20240909
  4. OLANZAPINE [Suspect]
     Active Substance: OLANZAPINE
     Indication: Schizophrenia
     Dosage: APPROVAL NUMBER: H20160497??DAILY DOSE: 7.5 MILLIGRAM
     Route: 048
     Dates: start: 20240908, end: 20240909
  5. OLANZAPINE [Suspect]
     Active Substance: OLANZAPINE
     Indication: Psychotic disorder
     Dosage: APPROVAL NUMBER: H20160497??DAILY DOSE: 10 MILLIGRAM
     Route: 048
     Dates: start: 20240911, end: 20240916
  6. OLANZAPINE [Suspect]
     Active Substance: OLANZAPINE
     Indication: Schizophrenia
     Dosage: APPROVAL NUMBER: H20160497??DAILY DOSE: 10 MILLIGRAM
     Route: 048
     Dates: start: 20240911, end: 20240916
  7. OLANZAPINE [Suspect]
     Active Substance: OLANZAPINE
     Indication: Psychotic disorder
     Dosage: APPROVAL NUMBER: H20160497??DAILY DOSE: 12.5 MILLIGRAM
     Route: 048
     Dates: start: 20240917, end: 20240919
  8. OLANZAPINE [Suspect]
     Active Substance: OLANZAPINE
     Indication: Schizophrenia
     Dosage: APPROVAL NUMBER: H20160497??DAILY DOSE: 12.5 MILLIGRAM
     Route: 048
     Dates: start: 20240917, end: 20240919

REACTIONS (1)
  - Drug-induced liver injury [Not Recovered/Not Resolved]
